FAERS Safety Report 12702769 (Version 1)
Quarter: 2016Q3

REPORT INFORMATION
  Report Type: Spontaneous
  Country: CN (occurrence: CN)
  Receive Date: 20160831
  Receipt Date: 20160831
  Transmission Date: 20161109
  Serious: Yes (Other)
  Sender: FDA-Public Use
  Company Number: CN-SUN PHARMACEUTICAL INDUSTRIES LTD-2016RR-122100

PATIENT
  Age: 55 Year
  Sex: Female

DRUGS (5)
  1. QUETIAPINE. [Suspect]
     Active Substance: QUETIAPINE
     Indication: POOR QUALITY SLEEP
  2. QUETIAPINE. [Suspect]
     Active Substance: QUETIAPINE
     Indication: INITIAL INSOMNIA
     Dosage: 25 MG PER NIGHT
     Route: 065
  3. FLUOXETINE [Concomitant]
     Active Substance: FLUOXETINE HYDROCHLORIDE
     Indication: DEPRESSION
     Dosage: 40 MG, DAILY
     Route: 065
  4. FLUOXETINE [Concomitant]
     Active Substance: FLUOXETINE HYDROCHLORIDE
     Indication: ANXIETY
  5. QUETIAPINE. [Suspect]
     Active Substance: QUETIAPINE
     Indication: TERMINAL INSOMNIA

REACTIONS (1)
  - Rapid eye movement sleep behaviour disorder [Recovered/Resolved]
